FAERS Safety Report 16245506 (Version 1)
Quarter: 2019Q2

REPORT INFORMATION
  Report Type: Spontaneous
  Country: NL (occurrence: NL)
  Receive Date: 20190426
  Receipt Date: 20190426
  Transmission Date: 20190711
  Serious: Yes (Other)
  Sender: FDA-Public Use
  Company Number: NL-MYLANLABS-2019M1039004

PATIENT
  Age: 73 Year
  Sex: Male
  Weight: 100 kg

DRUGS (18)
  1. TAMSULOSINE                        /01280301/ [Concomitant]
     Active Substance: TAMSULOSIN
     Dosage: UNK UNK, QD(1DD 0.4MG)
  2. MIDAZOLAM [Concomitant]
     Active Substance: MIDAZOLAM HYDROCHLORIDE
     Dosage: 7 MILLIGRAM, QD(1DD 7.5MG)
     Dates: start: 20181112
  3. ACETYLSALICYLZUUR [Concomitant]
     Active Substance: ASPIRIN
     Dosage: 80 MILLIGRAM, QD(1 DD 80 MG)
  4. ZOPICLON [Concomitant]
     Active Substance: ZOPICLONE
     Dosage: 7 MILLIGRAM, QD(1DD 7.5MG)
     Route: 065
     Dates: start: 20181106
  5. AMLODIPINE [Concomitant]
     Active Substance: AMLODIPINE BESYLATE
     Dosage: 5 MILLIGRAM, QD(1 DD 5 MG)
  6. VANCOMYCINE                        /00314401/ [Suspect]
     Active Substance: VANCOMYCIN
     Indication: DEVICE RELATED INFECTION
     Dosage: 1 DOSAGE FORM(3500MG/24U CONTINU)
     Route: 042
     Dates: start: 20181104, end: 20181117
  7. LEVODOPA/CARBIDOPA [Concomitant]
     Active Substance: CARBIDOPA\LEVODOPA
     Dosage: 4 DOSAGE FORM, Q8H(3DD 4 TABLETTEN)
  8. PARACETAMOL [Concomitant]
     Active Substance: ACETAMINOPHEN
     Dosage: 1 GRAM, Q6H(4 DD 1 G)
  9. CLONAZEPAM. [Concomitant]
     Active Substance: CLONAZEPAM
     Dosage: UNK UNK, QD(1DD 0.5MG)
  10. CLEMASTINE [Concomitant]
     Active Substance: CLEMASTINE
     Dosage: 1 DOSAGE FORM(EENAMLIG)
     Dates: start: 20181115
  11. RIFAMPICINE [Suspect]
     Active Substance: RIFAMPIN
     Indication: PRODUCT USED FOR UNKNOWN INDICATION
     Dosage: 450 MILLIGRAM, BID(2DD 450MG)
     Dates: start: 20181025
  12. NADROPARINE [Concomitant]
     Active Substance: NADROPARIN
     Dosage: 2850 INTERNATIONAL UNIT
     Dates: start: 20181019
  13. FENTANYL. [Concomitant]
     Active Substance: FENTANYL
     Dosage: 1 DOSAGE FORM(CA 50MCG/UUR)
     Dates: start: 20181116
  14. ROSUVASTATIN. [Suspect]
     Active Substance: ROSUVASTATIN
     Indication: PRODUCT USED FOR UNKNOWN INDICATION
     Dosage: 2 MILLIGRAM, QD(1DD 2.5MG)
     Route: 065
  15. CIPROFLOXACINE                     /00697201/ [Suspect]
     Active Substance: CIPROFLOXACIN
     Indication: PRODUCT USED FOR UNKNOWN INDICATION
     Dosage: 750 MILLIGRAM, BID(2DD 750MG PER OS)
     Route: 048
     Dates: start: 20181108
  16. PRAMIPEXOL                         /01356401/ [Concomitant]
     Dosage: UNK UNK, QD(1DD 0.75MG)
  17. LEVODOPA/CARBIDOPA [Concomitant]
     Active Substance: CARBIDOPA\LEVODOPA
     Dosage: 2 DOSAGE FORM, QD(1DD 2 TABLETTEN 100/25MG  )
  18. LOSARTAN. [Concomitant]
     Active Substance: LOSARTAN
     Dosage: 50 MILLIGRAM, BID(2 DD 50 MG)

REACTIONS (1)
  - Toxic epidermal necrolysis [Recovered/Resolved]

NARRATIVE: CASE EVENT DATE: 20181116
